FAERS Safety Report 21640881 (Version 1)
Quarter: 2022Q4

REPORT INFORMATION
  Report Type: Spontaneous
  Country: IT (occurrence: IT)
  Receive Date: 20221125
  Receipt Date: 20221125
  Transmission Date: 20230112
  Serious: Yes (Hospitalization)
  Sender: FDA-Public Use
  Company Number: IT-SUN PHARMACEUTICAL INDUSTRIES LTD-2022RR-365600

PATIENT
  Age: 86 Year
  Sex: Female

DRUGS (5)
  1. SERTRALINE [Suspect]
     Active Substance: SERTRALINE HYDROCHLORIDE
     Indication: Depression
     Dosage: THE PATIENT WAS TAKING 50MG/DAY. A BLISTER WITH MISSING 15CP
     Route: 048
  2. BISOPROLOL FUMARATE [Concomitant]
     Active Substance: BISOPROLOL FUMARATE
     Indication: Hypertension
     Dosage: 2.5 MG
     Route: 048
  3. BARNIDIPINA CLORIDRATO [Concomitant]
     Indication: Hypertension
     Dosage: 10 MG
     Route: 065
  4. IRBESARTAN E IDROCLOROTIAZIDE EG [Concomitant]
     Indication: Hypertension
     Dosage: 300/12.5 MG
     Route: 048
  5. RISPERIDONE [Concomitant]
     Active Substance: RISPERIDONE
     Indication: Psychotic disorder
     Dosage: 1 MG
     Route: 048

REACTIONS (1)
  - Sopor [Recovering/Resolving]

NARRATIVE: CASE EVENT DATE: 20220819
